FAERS Safety Report 20627577 (Version 1)
Quarter: 2022Q1

REPORT INFORMATION
  Report Type: Spontaneous
  Country: US (occurrence: US)
  Receive Date: 20220323
  Receipt Date: 20220323
  Transmission Date: 20220423
  Serious: Yes (Other)
  Sender: FDA-Public Use
  Company Number: US-SA-SAC20220322001210

PATIENT
  Age: 61 Year
  Sex: Female

DRUGS (1)
  1. ZANTAC [Suspect]
     Active Substance: RANITIDINE HYDROCHLORIDE
     Indication: Abdominal discomfort
     Dosage: 75 MG; FREQUENCY: OTHER
     Route: 065
     Dates: start: 200010, end: 201605

REACTIONS (4)
  - Bladder cancer [Unknown]
  - Lung neoplasm malignant [Unknown]
  - Thyroid cancer [Unknown]
  - Vulval cancer [Unknown]

NARRATIVE: CASE EVENT DATE: 20190401
